FAERS Safety Report 17574279 (Version 7)
Quarter: 2020Q2

REPORT INFORMATION
  Report Type: Spontaneous
  Country: US (occurrence: US)
  Receive Date: 20200324
  Receipt Date: 20200527
  Transmission Date: 20200713
  Serious: Yes (Hospitalization)
  Sender: FDA-Public Use
  Company Number: US-BIOGEN-2020BI00849666

PATIENT
  Sex: Female

DRUGS (2)
  1. TYSABRI [Suspect]
     Active Substance: NATALIZUMAB
     Route: 065
  2. TYSABRI [Suspect]
     Active Substance: NATALIZUMAB
     Indication: MULTIPLE SCLEROSIS
     Route: 065
     Dates: start: 20090902, end: 20131104

REACTIONS (5)
  - Multiple sclerosis relapse [Unknown]
  - Sepsis [Unknown]
  - Respiratory failure [Unknown]
  - Pneumonia [Unknown]
  - Aphasia [Not Recovered/Not Resolved]
